FAERS Safety Report 13415491 (Version 2)
Quarter: 2024Q4

REPORT INFORMATION
  Report Type: Spontaneous
  Country: US (occurrence: US)
  Receive Date: 20170406
  Receipt Date: 20241015
  Transmission Date: 20250115
  Serious: Yes (Hospitalization)
  Sender: BIOGEN
  Company Number: US-BIOGEN-2017BI00354375

PATIENT
  Age: 49 Year
  Sex: Female

DRUGS (7)
  1. TECFIDERA [Suspect]
     Active Substance: DIMETHYL FUMARATE
     Indication: Multiple sclerosis
     Route: 050
     Dates: start: 20160707, end: 20160920
  2. TECFIDERA [Suspect]
     Active Substance: DIMETHYL FUMARATE
     Route: 050
     Dates: start: 20160726, end: 201612
  3. TECFIDERA [Suspect]
     Active Substance: DIMETHYL FUMARATE
     Route: 050
     Dates: start: 20160920, end: 20170127
  4. TECFIDERA [Suspect]
     Active Substance: DIMETHYL FUMARATE
     Route: 050
     Dates: start: 20160725
  5. TECFIDERA [Suspect]
     Active Substance: DIMETHYL FUMARATE
     Route: 050
     Dates: start: 20160825
  6. BACLOFEN [Concomitant]
     Active Substance: BACLOFEN
     Indication: Product used for unknown indication
     Route: 050
  7. LYRICA [Concomitant]
     Active Substance: PREGABALIN
     Indication: Product used for unknown indication
     Route: 050

REACTIONS (5)
  - Central nervous system lesion [Not Recovered/Not Resolved]
  - Drug ineffective [Recovered/Resolved]
  - Gait disturbance [Unknown]
  - Underdose [Recovered/Resolved]
  - Multiple sclerosis [Unknown]

NARRATIVE: CASE EVENT DATE: 20170118
